FAERS Safety Report 6723713-5 (Version None)
Quarter: 2010Q2

REPORT INFORMATION
  Report Type: 
  Country: None (occurrence: None)
  Receive Date: 20100513
  Receipt Date: 20100504
  Transmission Date: 20101027
  Serious: Yes (Other)
  Sender: FDA-Public Use
  Company Number: PK-WATSON-2010-06146

PATIENT
  Age: 32 Year
  Sex: Male

DRUGS (2)
  1. PREDNISOLONE [Suspect]
     Indication: PROPHYLAXIS AGAINST TRANSPLANT REJECTION
     Dosage: 10 MG, DAILY
     Route: 048
     Dates: start: 20000101
  2. AZATHIOPRINE [Suspect]
     Indication: PROPHYLAXIS AGAINST TRANSPLANT REJECTION
     Dosage: 300 MG, DAILY
     Route: 048

REACTIONS (2)
  - B-CELL LYMPHOMA [None]
  - LYMPHOPROLIFERATIVE DISORDER [None]
